FAERS Safety Report 7710052-9 (Version None)
Quarter: 2011Q3

REPORT INFORMATION
  Report Type: 
  Country: None (occurrence: None)
  Receive Date: 20110825
  Receipt Date: 20110815
  Transmission Date: 20111222
  Serious: Yes (Disabling)
  Sender: FDA-Public Use
  Company Number: PHHY2011US58102

PATIENT
  Sex: Male
  Weight: 54.422 kg

DRUGS (1)
  1. EXJADE [Suspect]
     Indication: IRON OVERLOAD
     Dosage: 250 MG
     Route: 048
     Dates: start: 20110615, end: 20110714

REACTIONS (4)
  - ASTHENIA [None]
  - CONSTIPATION [None]
  - FATIGUE [None]
  - DECREASED APPETITE [None]
